FAERS Safety Report 4681096-9 (Version None)
Quarter: 2005Q2

REPORT INFORMATION
  Report Type: 
  Country: None (occurrence: None)
  Receive Date: 20050601
  Receipt Date: 20050516
  Transmission Date: 20051028
  Serious: Yes (Other)
  Sender: FDA-Public Use
  Company Number: US_010260535

PATIENT
  Age: 82 Year
  Sex: Male
  Weight: 80 kg

DRUGS (9)
  1. HUMALOG [Suspect]
  2. HUMULIN N [Suspect]
     Indication: DIABETES MELLITUS
     Dosage: 14 U DAY
     Dates: start: 20001101
  3. GLIPIZIDE [Concomitant]
  4. OMEPRAZOLE [Concomitant]
  5. HYDROCHLOROTHIAZIDE [Concomitant]
  6. METOPROLOL [Concomitant]
  7. LISINOPRIL [Concomitant]
  8. PIOGLITAZONE HCL [Concomitant]
  9. LORATADINE [Concomitant]

REACTIONS (7)
  - BACK DISORDER [None]
  - CONDITION AGGRAVATED [None]
  - CONFUSIONAL STATE [None]
  - JOINT SWELLING [None]
  - MYOCARDIAL INFARCTION [None]
  - RASH PRURITIC [None]
  - THINKING ABNORMAL [None]
